FAERS Safety Report 9160283 (Version 1)
Quarter: 2013Q1

REPORT INFORMATION
  Report Type: Spontaneous
  Country: GB (occurrence: None)
  Receive Date: 20130214
  Receipt Date: 20130214
  Transmission Date: 20140127
  Serious: No
  Sender: FDA-Public Use
  Company Number: 2013/023

PATIENT
  Age: 31 Year
  Sex: Female
  Weight: 100 kg

DRUGS (6)
  1. CEPHALEXIN [Suspect]
     Indication: AXILLARY MASS
     Route: 048
  2. LEVOTHYROXINE [Concomitant]
  3. DICLOFENAC [Concomitant]
  4. PARACETAMOL [Concomitant]
  5. ENOXAPARIN [Concomitant]
  6. AUGMENTIN [Concomitant]

REACTIONS (2)
  - Periorbital oedema [None]
  - Erythema [None]
